FAERS Safety Report 20719606 (Version 4)
Quarter: 2023Q4

REPORT INFORMATION
  Report Type: Other
  Country: JP (occurrence: JP)
  Receive Date: 20220418
  Receipt Date: 20231123
  Transmission Date: 20240109
  Serious: Yes (Hospitalization)
  Sender: FDA-Public Use
  Company Number: JP-CHUGAI-2022012666

PATIENT
  Age: 53 Year
  Sex: Female
  Weight: 81 kg

DRUGS (5)
  1. SATRALIZUMAB [Suspect]
     Active Substance: SATRALIZUMAB
     Indication: Neuromyelitis optica spectrum disorder
     Dosage: UNK
     Route: 058
  2. SATRALIZUMAB [Suspect]
     Active Substance: SATRALIZUMAB
     Route: 058
     Dates: start: 20201113
  3. PREDONINE [Suspect]
     Active Substance: PREDNISOLONE
     Indication: Neuromyelitis optica spectrum disorder
     Dosage: 25MG/DAY
     Route: 048
     Dates: start: 20201113
  4. PREDONINE [Suspect]
     Active Substance: PREDNISOLONE
     Dosage: 20MG/DAY
     Route: 048
  5. PREDNISOLONE [Concomitant]
     Active Substance: PREDNISOLONE
     Indication: Neuromyelitis optica spectrum disorder
     Dosage: 2MG/DAY
     Route: 048

REACTIONS (5)
  - Escherichia urinary tract infection [Recovered/Resolved]
  - Herpes zoster oticus [Unknown]
  - Clostridium test positive [Unknown]
  - Diarrhoea [Recovered/Resolved]
  - Cystitis [Recovered/Resolved]

NARRATIVE: CASE EVENT DATE: 20210105
